FAERS Safety Report 20194857 (Version 2)
Quarter: 2022Q3

REPORT INFORMATION
  Report Type: Spontaneous
  Country: JP (occurrence: JP)
  Receive Date: 20211216
  Receipt Date: 20220707
  Transmission Date: 20221027
  Serious: Yes (Other)
  Sender: FDA-Public Use
  Company Number: JP-MSD-2107JPN001289J

PATIENT
  Age: 27 Year
  Sex: Male
  Weight: 74 kg

DRUGS (1)
  1. KEYTRUDA [Suspect]
     Active Substance: PEMBROLIZUMAB
     Indication: Colon cancer
     Dosage: UNK
     Route: 041

REACTIONS (3)
  - Fulminant type 1 diabetes mellitus [Unknown]
  - Immune-mediated enterocolitis [Recovered/Resolved]
  - Malignant neoplasm progression [Unknown]
